FAERS Safety Report 17042922 (Version 1)
Quarter: 2019Q4

REPORT INFORMATION
  Report Type: Report from Study
  Country: AT (occurrence: AT)
  Receive Date: 20191118
  Receipt Date: 20191118
  Transmission Date: 20200122
  Serious: Yes (Death, Other)
  Sender: FDA-Public Use
  Company Number: AT-TEVA-2019-AT-1138644

PATIENT

DRUGS (4)
  1. LORAZEPAM. [Concomitant]
     Active Substance: LORAZEPAM
     Route: 065
  2. CIPROFLOXACIN. [Suspect]
     Active Substance: CIPROFLOXACIN
     Indication: ANTIBIOTIC THERAPY
     Route: 065
  3. CHLORPROTHIXEN [Suspect]
     Active Substance: CHLORPROTHIXENE HYDROCHLORIDE
     Indication: MENTAL DISORDER
     Route: 065
  4. OXAZEPAM. [Concomitant]
     Active Substance: OXAZEPAM
     Route: 065

REACTIONS (2)
  - Electrocardiogram QT prolonged [Unknown]
  - Ventricular fibrillation [Fatal]
